FAERS Safety Report 23145198 (Version 1)
Quarter: 2023Q4

REPORT INFORMATION
  Report Type: Spontaneous
  Country: CN (occurrence: None)
  Receive Date: 20231103
  Receipt Date: 20231103
  Transmission Date: 20240110
  Serious: Yes (Other)
  Sender: FDA-Public Use
  Company Number: 2023A250129

PATIENT
  Age: 61 Year
  Sex: Female
  Weight: 38 kg

DRUGS (4)
  1. SEROQUEL [Suspect]
     Active Substance: QUETIAPINE FUMARATE
     Indication: Bipolar disorder
     Route: 048
     Dates: start: 20230930, end: 20231006
  2. SEROQUEL [Suspect]
     Active Substance: QUETIAPINE FUMARATE
     Indication: Bipolar disorder
     Route: 048
     Dates: start: 20231007, end: 20231013
  3. SEROQUEL [Suspect]
     Active Substance: QUETIAPINE FUMARATE
     Indication: Bipolar disorder
     Route: 048
     Dates: start: 20231014, end: 20231023
  4. LITHIUM CARBONATE [Concomitant]
     Active Substance: LITHIUM CARBONATE
     Indication: Mood swings
     Route: 048
     Dates: start: 20230930, end: 20231023

REACTIONS (1)
  - Drug-induced liver injury [Recovering/Resolving]

NARRATIVE: CASE EVENT DATE: 20231012
